FAERS Safety Report 4796753-3 (Version None)
Quarter: 2005Q4

REPORT INFORMATION
  Report Type: 
  Country: None (occurrence: None)
  Receive Date: 20051007
  Receipt Date: 20050927
  Transmission Date: 20060501
  Serious: Yes (Hospitalization, Other)
  Sender: FDA-Public Use
  Company Number: 2005127594

PATIENT
  Age: 54 Year
  Sex: Male

DRUGS (3)
  1. CELEBREX [Suspect]
     Indication: ILL-DEFINED DISORDER
     Dosage: 200 MG, ORAL
     Route: 048
  2. COZAAR [Concomitant]
  3. PURICOS (ALLOPURINOL) [Concomitant]

REACTIONS (2)
  - ANAPHYLACTIC REACTION [None]
  - RASH [None]
